FAERS Safety Report 7494415-5 (Version None)
Quarter: 2011Q2

REPORT INFORMATION
  Report Type: 
  Country: None (occurrence: None)
  Receive Date: 20110520
  Receipt Date: 20110506
  Transmission Date: 20111010
  Serious: Yes (Other)
  Sender: FDA-Public Use
  Company Number: TR-WATSON-2011-06653

PATIENT
  Age: 62 Year
  Sex: Female

DRUGS (1)
  1. TRIAMCINOLONE DIACETATE [Suspect]
     Indication: CHOROIDAL NEOVASCULARISATION
     Dosage: UNK
     Route: 002

REACTIONS (1)
  - NECROTISING RETINITIS [None]
